FAERS Safety Report 6848215-7 (Version None)
Quarter: 2010Q3

REPORT INFORMATION
  Report Type: 
  Country: None (occurrence: None)
  Receive Date: 20100716
  Receipt Date: 20100705
  Transmission Date: 20110219
  Serious: Yes (Hospitalization)
  Sender: FDA-Public Use
  Company Number: Z0001600A

PATIENT
  Sex: Male
  Weight: 82.8 kg

DRUGS (2)
  1. PAZOPANIB [Suspect]
     Indication: RENAL CELL CARCINOMA
     Dosage: 800MG PER DAY
     Route: 048
     Dates: start: 20090804
  2. PAZOPANIB [Concomitant]
     Dosage: 800MG PER DAY
     Route: 048
     Dates: start: 20090804

REACTIONS (2)
  - FLANK PAIN [None]
  - HAEMATURIA [None]
